FAERS Safety Report 14252594 (Version 1)
Quarter: 2017Q4

REPORT INFORMATION
  Report Type: Spontaneous
  Country: US (occurrence: US)
  Receive Date: 20171205
  Receipt Date: 20171205
  Transmission Date: 20180321
  Serious: Yes (Other)
  Sender: FDA-Public Use
  Company Number: US-BAUSCH-BL-2017-032419

PATIENT
  Sex: Male

DRUGS (1)
  1. ATIVAN [Suspect]
     Active Substance: LORAZEPAM
     Indication: PRODUCT USED FOR UNKNOWN INDICATION
     Route: 064

REACTIONS (9)
  - Cyanosis neonatal [Unknown]
  - Tachycardia [Unknown]
  - Poor feeding infant [Unknown]
  - Foetal heart rate decreased [Unknown]
  - Maternal drugs affecting foetus [Unknown]
  - Premature baby [Unknown]
  - Respiratory distress [Unknown]
  - Bronchopulmonary dysplasia [Unknown]
  - Hypotonia neonatal [Unknown]
